FAERS Safety Report 8619898-6 (Version None)
Quarter: 2012Q3

REPORT INFORMATION
  Report Type: 
  Country: None (occurrence: None)
  Receive Date: 20120824
  Receipt Date: 20120815
  Transmission Date: 20120928
  Serious: Yes (Hospitalization, Disabling, Other)
  Sender: FDA-Public Use
  Company Number: US-009507513-1205USA04498

PATIENT

DRUGS (2)
  1. FOSAMAX [Suspect]
     Indication: OSTEOPENIA
     Dosage: 70 MG, QW
     Route: 048
     Dates: start: 20010208, end: 20090101
  2. FOSAMAX [Suspect]
     Indication: OSTEOPOROSIS

REACTIONS (21)
  - ESSENTIAL HYPERTENSION [None]
  - MIGRAINE [None]
  - LOW TURNOVER OSTEOPATHY [None]
  - HYPOAESTHESIA [None]
  - COUGH [None]
  - LIGAMENT SPRAIN [None]
  - MALIGNANT MELANOMA [None]
  - BRONCHITIS [None]
  - CONTUSION [None]
  - OSTEOARTHRITIS [None]
  - FEMUR FRACTURE [None]
  - FALL [None]
  - PERIARTHRITIS [None]
  - STRESS FRACTURE [None]
  - UPPER-AIRWAY COUGH SYNDROME [None]
  - BREAST MASS [None]
  - ASTHMA [None]
  - UPPER RESPIRATORY TRACT INFECTION [None]
  - OSTEOPOROSIS [None]
  - FOOT FRACTURE [None]
  - MOTION SICKNESS [None]
